FAERS Safety Report 11699890 (Version 1)
Quarter: 2015Q4

REPORT INFORMATION
  Report Type: Spontaneous
  Country: US (occurrence: None)
  Receive Date: 20151104
  Receipt Date: 20151104
  Transmission Date: 20160304
  Serious: Yes (Hospitalization)
  Sender: FDA-Public Use
  Company Number: None

PATIENT
  Age: 83 Year
  Sex: Male
  Weight: 87.2 kg

DRUGS (1)
  1. MORPHINE [Suspect]
     Active Substance: MORPHINE
     Indication: ARTHRALGIA
     Route: 048
     Dates: start: 20150507, end: 20150517

REACTIONS (8)
  - Fall [None]
  - Dizziness [None]
  - Memory impairment [None]
  - Sedation [None]
  - Confusional state [None]
  - Feeling abnormal [None]
  - Hypersomnia [None]
  - Inappropriate schedule of drug administration [None]

NARRATIVE: CASE EVENT DATE: 20150517
